FAERS Safety Report 5100144-5 (Version None)
Quarter: 2006Q3

REPORT INFORMATION
  Report Type: 
  Country: None (occurrence: None)
  Receive Date: 20060731
  Receipt Date: 20060515
  Transmission Date: 20061208
  Serious: Yes (Hospitalization, Other)
  Sender: FDA-Public Use
  Company Number: US-JNJFOC-20040901558

PATIENT
  Age: 49 Year
  Sex: Male
  Weight: 117.028 kg

DRUGS (6)
  1. RISPERDAL [Suspect]
     Indication: ACUTE PSYCHOSIS
     Dosage: SEE IMAGE
     Route: 048
     Dates: end: 20021001
  2. RISPERDAL [Suspect]
     Indication: SCHIZOPHRENIA
     Dosage: SEE IMAGE
     Route: 048
     Dates: end: 20021001
  3. RISPERDAL [Suspect]
     Indication: ACUTE PSYCHOSIS
     Dosage: SEE IMAGE
     Route: 048
     Dates: start: 19970104
  4. RISPERDAL [Suspect]
     Indication: SCHIZOPHRENIA
     Dosage: SEE IMAGE
     Route: 048
     Dates: start: 19970104
  5. RISPERDAL [Suspect]
     Indication: ACUTE PSYCHOSIS
     Dosage: SEE IMAGE
     Route: 048
     Dates: start: 20030129
  6. RISPERDAL [Suspect]
     Indication: SCHIZOPHRENIA
     Dosage: SEE IMAGE
     Route: 048
     Dates: start: 20030129

REACTIONS (8)
  - BACK PAIN [None]
  - BURSITIS [None]
  - DIABETES MELLITUS [None]
  - ERECTILE DYSFUNCTION [None]
  - HYPERTENSION [None]
  - KETOACIDOSIS [None]
  - SINUSITIS [None]
  - WEIGHT INCREASED [None]
